FAERS Safety Report 16712223 (Version 2)
Quarter: 2019Q3

REPORT INFORMATION
  Report Type: Spontaneous
  Country: JP (occurrence: JP)
  Receive Date: 20190816
  Receipt Date: 20190904
  Transmission Date: 20191004
  Serious: Yes (Death, Hospitalization)
  Sender: FDA-Public Use
  Company Number: JP-ALLERGAN-1932898US

PATIENT
  Sex: Female

DRUGS (1)
  1. BOTOX [Suspect]
     Active Substance: ONABOTULINUMTOXINA
     Indication: MUSCLE SPASMS
     Dosage: 300 IU, SINGLE
     Route: 030
     Dates: start: 20190719, end: 20190719

REACTIONS (3)
  - Muscular weakness [Fatal]
  - Sputum retention [Fatal]
  - Productive cough [Fatal]

NARRATIVE: CASE EVENT DATE: 20190720
